FAERS Safety Report 14583173 (Version 1)
Quarter: 2018Q1

REPORT INFORMATION
  Report Type: Spontaneous
  Country: US (occurrence: US)
  Receive Date: 20180228
  Receipt Date: 20180228
  Transmission Date: 20180509
  Serious: No
  Sender: FDA-Public Use
  Company Number: None

PATIENT

DRUGS (13)
  1. METOPROLOL 50MG [Suspect]
     Active Substance: METOPROLOL
     Indication: BLOOD PRESSURE MEASUREMENT
  2. ATORVASTATIN 20MG [Suspect]
     Active Substance: ATORVASTATIN
     Indication: BLOOD CHOLESTEROL INCREASED
  3. CALCITRIOL 0.25MCG STRIDES [Suspect]
     Active Substance: CALCITRIOL
     Indication: RENAL DISORDER
     Dosage: FREQUENCY M/W/F
  4. HYDRALAZINE 100MG [Suspect]
     Active Substance: HYDRALAZINE HYDROCHLORIDE
     Indication: BLOOD PRESSURE MEASUREMENT
  5. VITAMIN A AND D [Concomitant]
     Active Substance: LANOLIN\PETROLATUM
  6. SIMETHICONE (DIMETHICONE) [Concomitant]
     Active Substance: DIMETHICONE
  7. ASPIRIN 81 MG [Suspect]
     Active Substance: ASPIRIN
     Indication: THROMBOSIS PROPHYLAXIS
  8. FUROSEMIDE 40MG [Suspect]
     Active Substance: FUROSEMIDE
     Indication: FLUID OVERLOAD
  9. ALLOPURINOL 100 MG [Suspect]
     Active Substance: ALLOPURINOL
     Indication: GOUT
  10. SEVELAMER [Suspect]
     Active Substance: SEVELAMER
     Dosage: DOSE - 4 TABS WITH MEALS, 2 TABS WITH SNACKS
  11. CINACALCET 30MG [Suspect]
     Active Substance: CINACALCET
     Indication: RENAL DISORDER
  12. FERROUS GLUCONATE 324 MG [Suspect]
     Active Substance: FERROUS GLUCONATE
     Indication: ANAEMIA
  13. FUROSEMIDE 40MG [Suspect]
     Active Substance: FUROSEMIDE
     Indication: BLOOD PRESSURE MEASUREMENT

REACTIONS (2)
  - Renal failure [None]
  - Toe amputation [None]
